FAERS Safety Report 6608775-8 (Version None)
Quarter: 2010Q1

REPORT INFORMATION
  Report Type: 
  Country: None (occurrence: None)
  Receive Date: 20100224
  Receipt Date: 20100224
  Transmission Date: 20100710
  Serious: No
  Sender: FDA-Public Use
  Company Number: None

PATIENT
  Sex: Male
  Weight: 75.2971 kg

DRUGS (13)
  1. CLOZAPINE [Suspect]
     Dosage: 325MG PO, }1 MOS
     Route: 048
  2. COGENTIN [Concomitant]
  3. LORAZEPAM [Concomitant]
  4. TEMAZEPAM [Concomitant]
  5. SYNTHROID [Concomitant]
  6. RANITIDINE [Concomitant]
  7. SINEMET [Concomitant]
  8. AMANTADINE HCL [Concomitant]
  9. COLACE [Concomitant]
  10. NICOTINE [Concomitant]
  11. PNV [Concomitant]
  12. THIAMINE [Concomitant]
  13. CLOZAPINE [Concomitant]

REACTIONS (6)
  - BACK PAIN [None]
  - BLOOD PRESSURE SYSTOLIC INCREASED [None]
  - BODY TEMPERATURE INCREASED [None]
  - DYSTONIA [None]
  - HEART RATE INCREASED [None]
  - MENTAL STATUS CHANGES [None]
